FAERS Safety Report 7613099-6 (Version None)
Quarter: 2011Q3

REPORT INFORMATION
  Report Type: 
  Country: None (occurrence: None)
  Receive Date: 20110713
  Receipt Date: 20110517
  Transmission Date: 20111222
  Serious: No
  Sender: FDA-Public Use
  Company Number: US-005400

PATIENT
  Sex: Male
  Weight: 84.8226 kg

DRUGS (4)
  1. ASPIRIN [Concomitant]
  2. LIPITOR [Concomitant]
  3. DEGARELIX 240 MG [Suspect]
     Indication: PRODUCT USED FOR UNKNOWN INDICATION
     Dosage: (240 MG 1X, 120 X 2 INJECTIONS SUBCUTANEOUS)
     Route: 058
     Dates: start: 20110426
  4. AVODART [Concomitant]

REACTIONS (4)
  - INJECTION SITE SWELLING [None]
  - INJECTION SITE ERYTHEMA [None]
  - INJECTION SITE PAIN [None]
  - NAUSEA [None]
